FAERS Safety Report 4812644-3 (Version None)
Quarter: 2005Q4

REPORT INFORMATION
  Report Type: 
  Country: None (occurrence: None)
  Receive Date: 20051028
  Receipt Date: 20041103
  Transmission Date: 20060501
  Serious: No
  Sender: FDA-Public Use
  Company Number: US-GLAXOSMITHKLINE-A0532558A

PATIENT
  Sex: Male

DRUGS (4)
  1. ADVAIR DISKUS 100/50 [Suspect]
     Indication: DRUG USE FOR UNKNOWN INDICATION
     Route: 055
  2. LIPITOR [Concomitant]
  3. NASONEX [Concomitant]
  4. ALLEGRA [Concomitant]

REACTIONS (3)
  - DYSPNOEA [None]
  - EAR DISCOMFORT [None]
  - PHARMACEUTICAL PRODUCT COMPLAINT [None]
